FAERS Safety Report 15101693 (Version 2)
Quarter: 2018Q4

REPORT INFORMATION
  Report Type: Spontaneous
  Country: RU (occurrence: RU)
  Receive Date: 20180703
  Receipt Date: 20181025
  Transmission Date: 20190204
  Serious: Yes (Other)
  Sender: FDA-Public Use
  Company Number: RU-PFIZER INC-2018261438

PATIENT
  Age: 55 Year
  Sex: Male

DRUGS (1)
  1. SUTENT [Suspect]
     Active Substance: SUNITINIB MALATE
     Indication: RENAL CELL CARCINOMA
     Dosage: 50 MG, CYCLIC PER SCHEME 2:1
     Route: 048
     Dates: start: 201704

REACTIONS (3)
  - Pulmonary fibrosis [Unknown]
  - Chronic kidney disease [Unknown]
  - Benign prostatic hyperplasia [Unknown]

NARRATIVE: CASE EVENT DATE: 20181019
